FAERS Safety Report 4547225-2 (Version None)
Quarter: 2005Q1

REPORT INFORMATION
  Report Type: 
  Country: None (occurrence: None)
  Receive Date: 20050105
  Receipt Date: 20041203
  Transmission Date: 20050727
  Serious: Yes (Hospitalization)
  Sender: FDA-Public Use
  Company Number: 2004-FF-00765FF(0)

PATIENT
  Age: 29 Year
  Sex: Male

DRUGS (6)
  1. VIRAMUNE [Suspect]
     Indication: HIV INFECTION
     Dosage: 400 MG (200 MG)          PO
     Route: 048
     Dates: start: 20040323
  2. KALETRA [Suspect]
     Indication: HIV INFECTION
     Dosage: PO
     Route: 048
     Dates: start: 20040323
  3. DEROXAT             (PARAOXETINE HYDROCHLORIDE) [Concomitant]
  4. TERCIAN               (CYAMEMAZINE) [Concomitant]
  5. HAVLANE                  (LOPRAZOLAM MESILATE) [Concomitant]
  6. OMEPRAZOLE [Concomitant]

REACTIONS (6)
  - BACTERIAL INFECTION [None]
  - COUGH [None]
  - CYTOLYTIC HEPATITIS [None]
  - DRUG INEFFECTIVE [None]
  - LUNG DISORDER [None]
  - PYREXIA [None]
